FAERS Safety Report 7899867-4 (Version None)
Quarter: 2011Q4

REPORT INFORMATION
  Report Type: 
  Country: None (occurrence: None)
  Receive Date: 20111107
  Receipt Date: 20110927
  Transmission Date: 20120403
  Serious: No
  Sender: FDA-Public Use
  Company Number: US-AMGEN-USASP2011042376

PATIENT
  Age: 55 Year
  Sex: Female
  Weight: 90.703 kg

DRUGS (6)
  1. VITAMIN D [Concomitant]
     Indication: VITAMIN D DEFICIENCY
     Dosage: 50000 UNK, QWK
     Route: 048
  2. NEXIUM [Concomitant]
     Dosage: 40 MG, QD
     Route: 048
  3. FLEXERIL [Concomitant]
     Dosage: 10 MG, TID, PRN
     Route: 048
  4. SINEMET [Concomitant]
     Indication: RESTLESS LEGS SYNDROME
     Dosage: UNK UNK, QD
     Route: 048
  5. ENBREL [Suspect]
     Indication: ANKYLOSING SPONDYLITIS
     Dosage: 50 MG, QWK
     Dates: start: 20110322
  6. LEVOTHYROXINE SODIUM [Concomitant]
     Dosage: 100 MG, QD
     Route: 048

REACTIONS (6)
  - INJECTION SITE SWELLING [None]
  - INJECTION SITE ERYTHEMA [None]
  - INJECTION SITE PAIN [None]
  - INJECTION SITE REACTION [None]
  - INJECTION SITE MASS [None]
  - INJECTION SITE DISCHARGE [None]
